FAERS Safety Report 24549877 (Version 2)
Quarter: 2024Q4

REPORT INFORMATION
  Report Type: Spontaneous
  Country: US (occurrence: US)
  Receive Date: 20241025
  Receipt Date: 20241112
  Transmission Date: 20250115
  Serious: No
  Sender: ABBVIE
  Company Number: US-ABBVIE-5971464

PATIENT
  Age: 68 Year
  Sex: Female
  Weight: 62 kg

DRUGS (1)
  1. REFRESH TEARS PF [Suspect]
     Active Substance: CARBOXYMETHYLCELLULOSE SODIUM\GLYCERIN
     Indication: Dry eye
     Dosage: TIME INTERVAL: AS NECESSARY: 1-2 DROPS ON EACH EYE?FORM STRENGTH-CMC 0.5% AND GLYCERIN 0.9% MDPF
     Route: 047
     Dates: start: 20240829, end: 202410

REACTIONS (8)
  - Poor quality product administered [Not Recovered/Not Resolved]
  - Cough [Recovering/Resolving]
  - Tendon injury [Not Recovered/Not Resolved]
  - Parosmia [Not Recovered/Not Resolved]
  - Rhinalgia [Not Recovered/Not Resolved]
  - Eye pain [Not Recovered/Not Resolved]
  - Product odour abnormal [Not Recovered/Not Resolved]
  - Fatigue [Not Recovered/Not Resolved]

NARRATIVE: CASE EVENT DATE: 20240828
